FAERS Safety Report 11155786 (Version 1)
Quarter: 2015Q2

REPORT INFORMATION
  Report Type: Spontaneous
  Country: IT (occurrence: IT)
  Receive Date: 20150602
  Receipt Date: 20150602
  Transmission Date: 20150821
  Serious: Yes (Hospitalization)
  Sender: FDA-Public Use
  Company Number: PHHY2015IT065994

PATIENT
  Age: 1 Year
  Sex: Male

DRUGS (2)
  1. TEGRETOL [Suspect]
     Active Substance: CARBAMAZEPINE
     Indication: PRODUCT USED FOR UNKNOWN INDICATION
     Dosage: 100 MG, QD, (20 MG/ML SYRUP CHILDREN)
     Route: 048
     Dates: start: 20150428
  2. TEGRETOL [Suspect]
     Active Substance: CARBAMAZEPINE
     Dosage: 20 MG, TID
     Route: 048

REACTIONS (2)
  - Fall [Recovered/Resolved]
  - Hypotonia [Recovered/Resolved]

NARRATIVE: CASE EVENT DATE: 20150428
